FAERS Safety Report 25847348 (Version 1)
Quarter: 2025Q3

REPORT INFORMATION
  Report Type: Spontaneous
  Country: US (occurrence: US)
  Receive Date: 20250925
  Receipt Date: 20250925
  Transmission Date: 20251021
  Serious: No
  Sender: RECKITT BENCKISER
  Company Number: US-INDIVIOR US-INDV-166541-2025

PATIENT
  Age: 28 Year
  Sex: Male

DRUGS (6)
  1. PERSERIS [Suspect]
     Active Substance: RISPERIDONE
     Indication: Schizophrenia
     Dosage: 120 MILLIGRAM, QMO (FIRST INJECTION)
     Route: 030
     Dates: start: 20250110
  2. PERSERIS [Suspect]
     Active Substance: RISPERIDONE
     Dosage: 120 MILLIGRAM, QMO (SECOND INJECTION)
     Route: 058
     Dates: start: 20250225
  3. PERSERIS [Suspect]
     Active Substance: RISPERIDONE
     Dosage: 120 MILLIGRAM, QMO (THIRD INJECTION)
     Route: 058
     Dates: start: 20250328
  4. PERSERIS [Suspect]
     Active Substance: RISPERIDONE
     Dosage: 120 MILLIGRAM, QMO (FOURTH INJECTION)
     Route: 058
     Dates: start: 20250425
  5. PERSERIS [Suspect]
     Active Substance: RISPERIDONE
     Dosage: 120 MILLIGRAM, QMO (FIFTH INJECTION)
     Route: 065
     Dates: start: 20250522
  6. PERSERIS [Suspect]
     Active Substance: RISPERIDONE
     Dosage: 120 MILLIGRAM, QMO (FURTHER INJECTIONS)
     Route: 058
     Dates: start: 2025

REACTIONS (5)
  - Product administered at inappropriate site [Recovered/Resolved]
  - Inappropriate schedule of product administration [Recovered/Resolved]
  - Schizophrenia [Recovering/Resolving]
  - Incorrect route of product administration [Recovered/Resolved]
  - Myalgia [Recovered/Resolved]

NARRATIVE: CASE EVENT DATE: 20250101
